FAERS Safety Report 14654142 (Version 1)
Quarter: 2018Q1

REPORT INFORMATION
  Report Type: Spontaneous
  Country: GB (occurrence: GB)
  Receive Date: 20180319
  Receipt Date: 20180319
  Transmission Date: 20180509
  Serious: Yes (Other)
  Sender: FDA-Public Use
  Company Number: GB-BIOGEN-2017BI00442689

PATIENT
  Age: 56 Year
  Sex: Female

DRUGS (2)
  1. PLEGRIDY [Suspect]
     Active Substance: PEGINTERFERON BETA-1A
     Indication: RELAPSING-REMITTING MULTIPLE SCLEROSIS
     Route: 058
     Dates: start: 20170516
  2. PLEGRIDY [Suspect]
     Active Substance: PEGINTERFERON BETA-1A
     Route: 058
     Dates: start: 20170605

REACTIONS (9)
  - Gait disturbance [Not Recovered/Not Resolved]
  - Blindness [Unknown]
  - Limb discomfort [Not Recovered/Not Resolved]
  - Nasopharyngitis [Unknown]
  - Insomnia [Unknown]
  - Rash generalised [Unknown]
  - Hypoaesthesia [Not Recovered/Not Resolved]
  - Lower respiratory tract infection [Unknown]
  - Swelling face [Unknown]

NARRATIVE: CASE EVENT DATE: 20170801
